FAERS Safety Report 22230970 (Version 1)
Quarter: 2023Q2

REPORT INFORMATION
  Report Type: Spontaneous
  Country: CA (occurrence: CA)
  Receive Date: 20230420
  Receipt Date: 20230420
  Transmission Date: 20230722
  Serious: Yes (Other)
  Sender: FDA-Public Use
  Company Number: CA-drreddys-LIT/CAN/23/0163950

PATIENT
  Age: 72 Year
  Sex: Female

DRUGS (4)
  1. AZACITIDINE [Suspect]
     Active Substance: AZACITIDINE
     Indication: Primary myelofibrosis
     Dosage: AFTER RECEIVING 3 CYCLES
     Dates: start: 202104
  2. AZACITIDINE [Suspect]
     Active Substance: AZACITIDINE
     Dosage: AFTER 7 CYCLES
     Dates: start: 202109
  3. CEDAZURIDINE\DECITABINE [Suspect]
     Active Substance: CEDAZURIDINE\DECITABINE
     Indication: Primary myelofibrosis
     Route: 048
  4. CEDAZURIDINE\DECITABINE [Suspect]
     Active Substance: CEDAZURIDINE\DECITABINE

REACTIONS (4)
  - Cytopenia [Not Recovered/Not Resolved]
  - Myeloproliferative neoplasm [Unknown]
  - Malignant neoplasm progression [Unknown]
  - Drug ineffective for unapproved indication [Unknown]
